FAERS Safety Report 15014806 (Version 1)
Quarter: 2018Q2

REPORT INFORMATION
  Report Type: Spontaneous
  Country: US (occurrence: US)
  Receive Date: 20180530
  Receipt Date: 20180530
  Transmission Date: 20180711
  Serious: Yes (Other)
  Sender: FDA-Public Use
  Company Number: None

PATIENT
  Age: 37 Year
  Sex: Male
  Weight: 74.7 kg

DRUGS (5)
  1. ECONAZOLE TOPICAL CREAM [Concomitant]
     Dates: start: 20180418
  2. CLONAZEPAM 0.25 [Concomitant]
     Dates: start: 20110501
  3. DULOXETINE. [Suspect]
     Active Substance: DULOXETINE
     Indication: MAJOR DEPRESSION
     Route: 048
     Dates: start: 20180501, end: 20180524
  4. PENLAC NAIL VARNISH [Concomitant]
     Dates: start: 20180418
  5. FLONASE [Concomitant]
     Active Substance: FLUTICASONE PROPIONATE
     Dates: start: 20170314

REACTIONS (9)
  - Middle insomnia [None]
  - Self esteem decreased [None]
  - Product substitution issue [None]
  - Depression [None]
  - Night sweats [None]
  - Headache [None]
  - Arthralgia [None]
  - Mental impairment [None]
  - Feelings of worthlessness [None]

NARRATIVE: CASE EVENT DATE: 20180511
